FAERS Safety Report 12969183 (Version 1)
Quarter: 2016Q4

REPORT INFORMATION
  Report Type: Spontaneous
  Country: US (occurrence: US)
  Receive Date: 20161123
  Receipt Date: 20161123
  Transmission Date: 20170207
  Serious: Yes (Disabling, Other)
  Sender: FDA-Public Use
  Company Number: US-ELI_LILLY_AND_COMPANY-US201611005914

PATIENT
  Age: 78 Year
  Sex: Female

DRUGS (1)
  1. EFFIENT [Suspect]
     Active Substance: PRASUGREL HYDROCHLORIDE
     Indication: STENT PLACEMENT
     Dosage: 10 MG, QD
     Route: 065
     Dates: start: 2014

REACTIONS (4)
  - Eye haemorrhage [Unknown]
  - Increased tendency to bruise [Unknown]
  - Contusion [Unknown]
  - Visual acuity reduced [Not Recovered/Not Resolved]
